FAERS Safety Report 4721950-2 (Version None)
Quarter: 2005Q3

REPORT INFORMATION
  Report Type: 
  Country: None (occurrence: None)
  Receive Date: 20050722
  Receipt Date: 20050520
  Transmission Date: 20060218
  Serious: Yes (Hospitalization)
  Sender: FDA-Public Use
  Company Number: FR-BRISTOL-MYERS SQUIBB COMPANY-12976460

PATIENT
  Age: 53 Year
  Sex: Male
  Weight: 72 kg

DRUGS (6)
  1. REYATAZ [Suspect]
     Indication: HIV INFECTION
     Route: 048
     Dates: start: 20040729
  2. NORVIR [Concomitant]
     Dates: start: 20040729
  3. EPIVIR [Concomitant]
     Dates: start: 20031105
  4. VIREAD [Concomitant]
     Dates: start: 20031105
  5. NICARDIPINE HCL [Concomitant]
     Indication: HYPERTENSION
  6. TAHOR [Concomitant]
     Indication: DYSLIPIDAEMIA

REACTIONS (3)
  - CHOLECYSTITIS [None]
  - DIABETES MELLITUS [None]
  - PYREXIA [None]
